FAERS Safety Report 8303482-8 (Version None)
Quarter: 2012Q2

REPORT INFORMATION
  Report Type: 
  Country: None (occurrence: None)
  Receive Date: 20120404
  Receipt Date: 20120321
  Transmission Date: 20120825
  Serious: Yes (Death)
  Sender: FDA-Public Use
  Company Number: 2012PROUSA01205

PATIENT
  Age: 73 Year
  Sex: Male
  Weight: 74.8 kg

DRUGS (9)
  1. PROVENGE [Suspect]
  2. LEUPROLIDE (LEUPRORELIN) [Concomitant]
  3. LEVOTHYROXINE SODIUM [Concomitant]
  4. MEGESTROL ACETATE [Concomitant]
  5. PROVENGE [Suspect]
     Indication: PROSTATE CANCER METASTATIC
     Dosage: 250 ML, SINGLE, INTRAVENOUS
     Route: 042
     Dates: start: 20120305, end: 20120305
  6. PROVENGE [Suspect]
     Indication: PROSTATE CANCER METASTATIC
     Dosage: 250 ML, SINGLE, INTRAVENOUS
     Route: 042
     Dates: start: 20120319, end: 20120319
  7. ZOLEDRONIC ACID [Concomitant]
  8. SIMVASTATIN [Concomitant]
  9. METOPROLOL TARTRATE [Concomitant]

REACTIONS (2)
  - CERVICAL VERTEBRAL FRACTURE [None]
  - FALL [None]
